FAERS Safety Report 7150434-X (Version None)
Quarter: 2010Q4

REPORT INFORMATION
  Report Type: 
  Country: None (occurrence: None)
  Receive Date: 20101210
  Receipt Date: 20101202
  Transmission Date: 20110411
  Serious: Yes (Other)
  Sender: FDA-Public Use
  Company Number: PHHY2010US47223

PATIENT
  Sex: Female

DRUGS (9)
  1. EXTAVIA [Suspect]
     Indication: MULTIPLE SCLEROSIS
     Dosage: 0.3 MG, QOD
     Route: 058
     Dates: start: 20100301
  2. EXTAVIA [Suspect]
     Dosage: 0.25 MG, QOD
     Route: 058
     Dates: start: 20100401
  3. WELLBUTRIN [Concomitant]
     Dosage: UNK
  4. GABAPENTIN [Concomitant]
     Dosage: UNK
  5. CELEXA [Concomitant]
     Dosage: UNK
  6. ALLEGRA D 24 HOUR [Concomitant]
  7. TRAZODONE [Concomitant]
  8. DARVOCET [Concomitant]
  9. ADVIL [Concomitant]

REACTIONS (6)
  - INJECTION SITE ERYTHEMA [None]
  - INJECTION SITE PAIN [None]
  - INJECTION SITE SWELLING [None]
  - LIMB INJURY [None]
  - NAUSEA [None]
  - SUTURE INSERTION [None]
